FAERS Safety Report 13503913 (Version 1)
Quarter: 2017Q2

REPORT INFORMATION
  Report Type: Not Available
  Country: US (occurrence: US)
  Receive Date: 20170502
  Receipt Date: 20170502
  Transmission Date: 20170830
  Serious: No
  Sender: FDA-Public Use
  Company Number: US-ANIPHARMA-2017-US-004171

PATIENT
  Sex: Female

DRUGS (1)
  1. INNOPRAN XL [Suspect]
     Active Substance: PROPRANOLOL HYDROCHLORIDE
     Dosage: ONCE DAILY IN MORNING
     Route: 048
     Dates: end: 201701

REACTIONS (6)
  - Blood pressure increased [Unknown]
  - Therapeutic response unexpected [Unknown]
  - Tremor [Unknown]
  - Therapy cessation [None]
  - Palpitations [Unknown]
  - Inability to afford medication [None]

NARRATIVE: CASE EVENT DATE: 201701
